FAERS Safety Report 4642314-6 (Version None)
Quarter: 2005Q2

REPORT INFORMATION
  Report Type: 
  Country: None (occurrence: None)
  Receive Date: 20050420
  Receipt Date: 20050407
  Transmission Date: 20051028
  Serious: Yes (Other)
  Sender: FDA-Public Use
  Company Number: 2005059410

PATIENT
  Age: 42 Year
  Sex: Female

DRUGS (2)
  1. CELEBRA (CELECOXIB) [Suspect]
     Indication: FIBROMYALGIA
     Dosage: 400 MG (200 MG, 2 IN 1 D), ORAL
     Route: 048
     Dates: start: 20000101, end: 20040101
  2. CELEBRA (CELECOXIB) [Suspect]
     Indication: RHEUMATOID ARTHRITIS
     Dosage: 400 MG (200 MG, 2 IN 1 D), ORAL
     Route: 048
     Dates: start: 20000101, end: 20040101

REACTIONS (1)
  - RAYNAUD'S PHENOMENON [None]
